FAERS Safety Report 7612194-5 (Version None)
Quarter: 2011Q3

REPORT INFORMATION
  Report Type: 
  Country: None (occurrence: None)
  Receive Date: 20110715
  Receipt Date: 20110712
  Transmission Date: 20111222
  Serious: Yes (Life-Threatening, Hospitalization)
  Sender: FDA-Public Use
  Company Number: US-B.I. PHARMACEUTICALS,INC./RIDGEFIELD-2011-BP-04999BP

PATIENT
  Age: 86 Year
  Sex: Male

DRUGS (18)
  1. MV [Concomitant]
  2. TORSEMIDE [Concomitant]
  3. ISODIL [Concomitant]
     Dosage: 60 MEQ
  4. ROPINIROLE [Concomitant]
  5. ULORIC [Concomitant]
  6. PRADAXA [Suspect]
     Indication: ATRIAL FIBRILLATION
     Dates: start: 20110208, end: 20110215
  7. CALCITROLO [Concomitant]
     Dosage: 0.5 MG
  8. CARAFATE [Concomitant]
     Dosage: 3 G
  9. LOPRESSOR [Concomitant]
  10. AMLODIPINE [Concomitant]
     Dosage: 50 MG
  11. FEXOFENADINE [Concomitant]
     Dosage: 180 MG
  12. POTASSIUM CHLORIDE [Concomitant]
  13. SIMVASTATIN [Concomitant]
  14. VIT B1 [Concomitant]
  15. NITROGLYCERIN [Concomitant]
  16. PREDNISONE [Concomitant]
  17. VIT D3 [Concomitant]
  18. METOLAZONE [Concomitant]

REACTIONS (5)
  - URINARY INCONTINENCE [None]
  - GASTROINTESTINAL HAEMORRHAGE [None]
  - DYSPNOEA [None]
  - HIATUS HERNIA [None]
  - ACQUIRED OESOPHAGEAL WEB [None]
